FAERS Safety Report 25797942 (Version 1)
Quarter: 2025Q3

REPORT INFORMATION
  Report Type: Spontaneous
  Country: MX (occurrence: MX)
  Receive Date: 20250912
  Receipt Date: 20250912
  Transmission Date: 20251021
  Serious: Yes (Other)
  Sender: PFIZER
  Company Number: MX-PFIZER INC-202500179563

PATIENT
  Age: 15 Year
  Sex: Male

DRUGS (2)
  1. BENEFIX [Suspect]
     Active Substance: COAGULATION FACTOR IX RECOMBINANT HUMAN\ISOPROPYL ALCOHOL
     Dosage: 4000 IU, WEEKLY
  2. BENEFIX [Suspect]
     Active Substance: COAGULATION FACTOR IX RECOMBINANT HUMAN\ISOPROPYL ALCOHOL
     Dosage: 2000 IU ON MONDAYS AND 2500 IU ON THURSDAYS

REACTIONS (4)
  - Haemarthrosis [Unknown]
  - Cartilage injury [Unknown]
  - Synovitis [Unknown]
  - Chondropathy [Unknown]
